FAERS Safety Report 14159908 (Version 1)
Quarter: 2017Q4

REPORT INFORMATION
  Report Type: Spontaneous
  Country: CN (occurrence: CN)
  Receive Date: 20171106
  Receipt Date: 20171106
  Transmission Date: 20180321
  Serious: Yes (Death, Other)
  Sender: FDA-Public Use
  Company Number: CN-CIPLA LTD.-2017CN19192

PATIENT

DRUGS (3)
  1. CISPLATIN. [Suspect]
     Active Substance: CISPLATIN
     Indication: CLEAR CELL SARCOMA OF SOFT TISSUE
     Dosage: UNK
     Route: 065
     Dates: start: 201105
  2. EPIRUBICIN [Suspect]
     Active Substance: EPIRUBICIN
     Indication: CLEAR CELL SARCOMA OF SOFT TISSUE
     Dosage: UNK
     Route: 065
     Dates: start: 201105
  3. DACARBAZINE. [Suspect]
     Active Substance: DACARBAZINE
     Indication: CLEAR CELL SARCOMA OF SOFT TISSUE
     Dosage: UNK
     Route: 065
     Dates: start: 201105

REACTIONS (4)
  - Multiple organ dysfunction syndrome [Fatal]
  - Decreased appetite [Unknown]
  - Vomiting [Unknown]
  - Metastases to lung [Unknown]

NARRATIVE: CASE EVENT DATE: 201109
